FAERS Safety Report 6723443-X (Version None)
Quarter: 2010Q2

REPORT INFORMATION
  Report Type: 
  Country: None (occurrence: None)
  Receive Date: 20100513
  Receipt Date: 20100510
  Transmission Date: 20101027
  Serious: Yes (Death, Life-Threatening, Hospitalization)
  Sender: FDA-Public Use
  Company Number: PHHY2010FI29886

PATIENT
  Age: 80 Year
  Sex: Male

DRUGS (2)
  1. EXELON [Suspect]
     Dosage: UNK
     Route: 062
  2. EXELON [Suspect]
     Dosage: HALF PATCH
     Route: 062

REACTIONS (4)
  - ANTICHOLINERGIC SYNDROME [None]
  - CIRCULATORY COLLAPSE [None]
  - CONDITION AGGRAVATED [None]
  - OVERDOSE [None]
